FAERS Safety Report 6868840-7 (Version None)
Quarter: 2010Q3

REPORT INFORMATION
  Report Type: 
  Country: None (occurrence: None)
  Receive Date: 20100721
  Receipt Date: 20100721
  Transmission Date: 20110219
  Serious: Yes (Other)
  Sender: FDA-Public Use
  Company Number: None

PATIENT
  Age: 96 Year
  Sex: Male

DRUGS (4)
  1. DORZOLAMIDE HYDROCHLORIDE [Suspect]
     Indication: GLAUCOMA
     Dosage: 1 DROP IN THE LEFT EYE TWICE DAILY OPHTHALMIC
     Route: 047
     Dates: start: 20100714, end: 20100719
  2. LORAZEPAM [Concomitant]
  3. IBUPROFEN TABLETS [Concomitant]
  4. LEVOXYL [Concomitant]

REACTIONS (2)
  - EYE SWELLING [None]
  - PRODUCT SUBSTITUTION ISSUE [None]
